FAERS Safety Report 10729654 (Version 1)
Quarter: 2015Q1

REPORT INFORMATION
  Report Type: Spontaneous
  Country: US (occurrence: None)
  Receive Date: 20150121
  Receipt Date: 20150121
  Transmission Date: 20150721
  Serious: Yes (Disabling)
  Sender: FDA-Public Use
  Company Number: None

PATIENT
  Age: 53 Year
  Sex: Female
  Weight: 68.04 kg

DRUGS (1)
  1. DEXILANT [Suspect]
     Active Substance: DEXLANSOPRAZOLE
     Indication: ABDOMINAL DISCOMFORT
     Dosage: 2 PILLS ?BY MOUTH?ONLY TOOK IT ONCE I BELIEVE IT WAS 5-6-2014
     Route: 048
     Dates: start: 20140506

REACTIONS (3)
  - Joint range of motion decreased [None]
  - Chest pain [None]
  - Dyspepsia [None]

NARRATIVE: CASE EVENT DATE: 201405
